FAERS Safety Report 9664837 (Version 1)
Quarter: 2013Q4

REPORT INFORMATION
  Report Type: Report from Study
  Country: US (occurrence: US)
  Receive Date: 20131101
  Receipt Date: 20131101
  Transmission Date: 20140711
  Serious: Yes (Other)
  Sender: FDA-Public Use
  Company Number: US-ABBVIE-13P-163-1161898-00

PATIENT
  Sex: Female

DRUGS (6)
  1. HUMIRA [Suspect]
     Indication: CROHN^S DISEASE
     Dates: start: 201210
  2. HUMIRA [Suspect]
     Indication: CROHN^S DISEASE
  3. NUCYNTA [Concomitant]
     Indication: PANCREATITIS
     Dosage: FREQUENCY UNKNOWN
  4. NUCYNTA [Concomitant]
     Indication: PAIN
  5. OPANA [Concomitant]
     Indication: PANCREATITIS
  6. OPANA [Concomitant]
     Indication: PAIN

REACTIONS (2)
  - Pancreatitis [Unknown]
  - Injection site paraesthesia [Not Recovered/Not Resolved]
